FAERS Safety Report 5586035-4 (Version None)
Quarter: 2007Q4

REPORT INFORMATION
  Report Type: 
  Country: None (occurrence: None)
  Receive Date: 20071205
  Receipt Date: 20071017
  Transmission Date: 20080405
  Serious: Yes (Death)
  Sender: FDA-Public Use
  Company Number: US-WYE-H00731907

PATIENT
  Age: 28 Year
  Sex: Male

DRUGS (3)
  1. EFFEXOR XR [Suspect]
     Indication: MAJOR DEPRESSION
     Dosage: 150 MG UNKNOWN FREQUENCY, ORAL
     Route: 048
  2. DEPAKOTE [Suspect]
     Indication: MOOD SWINGS
     Dosage: ORAL
     Route: 048
  3. SEROQUEL [Suspect]
     Indication: MOOD SWINGS
     Dosage: ORAL
     Route: 048

REACTIONS (1)
  - COMPLETED SUICIDE [None]
